FAERS Safety Report 10027715 (Version 1)
Quarter: 2014Q1

REPORT INFORMATION
  Report Type: Spontaneous
  Country: US (occurrence: US)
  Receive Date: 20140321
  Receipt Date: 20140321
  Transmission Date: 20141002
  Serious: No
  Sender: FDA-Public Use
  Company Number: US-MALLINCKRODT-T201301546

PATIENT
  Sex: Female

DRUGS (2)
  1. METHADONE [Suspect]
     Indication: PRODUCT USED FOR UNKNOWN INDICATION
     Dosage: BELOW 5 MG
  2. METHADONE [Suspect]
     Dosage: BID, 5 MG AM AND 5 MG PM

REACTIONS (4)
  - Depression [Unknown]
  - Pain in extremity [Unknown]
  - Tremor [Unknown]
  - Sensation of heaviness [Unknown]
